FAERS Safety Report 13499895 (Version 1)
Quarter: 2017Q2

REPORT INFORMATION
  Report Type: Spontaneous
  Country: US (occurrence: US)
  Receive Date: 20170501
  Receipt Date: 20170501
  Transmission Date: 20170830
  Serious: No
  Sender: FDA-Public Use
  Company Number: US-009507513-1704USA009886

PATIENT
  Sex: Male

DRUGS (2)
  1. INTRON A [Suspect]
     Active Substance: INTERFERON ALFA-2B
     Indication: MALIGNANT MELANOMA
     Dosage: 20 MU, EVERY MONDAY, WEDNESDAY AND FRIDAY; STENGHT: 25 MU
     Route: 042
     Dates: start: 20161020
  2. VITAMINS (UNSPECIFIED) [Concomitant]
     Active Substance: VITAMINS

REACTIONS (1)
  - Influenza like illness [Recovered/Resolved]
